FAERS Safety Report 13917937 (Version 1)
Quarter: 2017Q3

REPORT INFORMATION
  Report Type: Spontaneous
  Country: US (occurrence: US)
  Receive Date: 20170829
  Receipt Date: 20170829
  Transmission Date: 20171127
  Serious: No
  Sender: FDA-Public Use
  Company Number: US-SA-2016SA160077

PATIENT
  Age: 40 Year
  Sex: Female
  Weight: 72.57 kg

DRUGS (17)
  1. FABRAZYME [Suspect]
     Active Substance: AGALSIDASE BETA
     Indication: FABRY^S DISEASE
     Route: 042
  2. FABRAZYME [Suspect]
     Active Substance: AGALSIDASE BETA
     Indication: LIPIDOSIS
     Route: 042
  3. DIPHENHYDRAMINE. [Concomitant]
     Active Substance: DIPHENHYDRAMINE
     Indication: ANAPHYLACTIC REACTION
     Dosage: DOSE:50 MILLIGRAM(S)/MILLILITRE
     Route: 042
     Dates: start: 20151105
  4. SOLU-CORTEF [Concomitant]
     Active Substance: HYDROCORTISONE SODIUM SUCCINATE
     Indication: ANAPHYLACTIC REACTION
     Route: 042
     Dates: start: 20151105
  5. SODIUM CHLORIDE. [Concomitant]
     Active Substance: SODIUM CHLORIDE
     Indication: FLUSHING
     Route: 042
     Dates: start: 20151105
  6. CARBAMAZEPINE. [Concomitant]
     Active Substance: CARBAMAZEPINE
     Route: 048
     Dates: start: 20151119
  7. ACETAMINOPHEN. [Concomitant]
     Active Substance: ACETAMINOPHEN
     Indication: PREMEDICATION
     Route: 048
     Dates: start: 20151105
  8. NORMAL SALINE [Concomitant]
     Active Substance: SODIUM CHLORIDE
     Indication: MEDICATION DILUTION
     Route: 042
     Dates: start: 20151105
  9. FABRAZYME [Suspect]
     Active Substance: AGALSIDASE BETA
     Indication: LIPIDOSIS
     Route: 042
  10. JUNEL FE 1/20 [Concomitant]
     Active Substance: ETHINYL ESTRADIOL\NORETHINDRONE ACETATE
     Route: 048
     Dates: start: 20151119
  11. CLONAZEPAM. [Concomitant]
     Active Substance: CLONAZEPAM
     Route: 048
     Dates: start: 20151103
  12. AMOXICILLIN. [Concomitant]
     Active Substance: AMOXICILLIN
     Route: 048
     Dates: start: 20160127
  13. DEXAMETHASONE. [Concomitant]
     Active Substance: DEXAMETHASONE
     Indication: ANAPHYLACTIC REACTION
     Dosage: DOSE:10 MILLIGRAM(S)/MILLILITRE
     Route: 042
     Dates: start: 20151105
  14. GABAPENTIN. [Concomitant]
     Active Substance: GABAPENTIN
     Route: 048
     Dates: start: 20151103
  15. EPIPEN [Concomitant]
     Active Substance: EPINEPHRINE
     Indication: ANAPHYLACTIC REACTION
     Route: 030
     Dates: start: 20151105
  16. AMITRIPTYLINE [Concomitant]
     Active Substance: AMITRIPTYLINE
     Route: 048
     Dates: start: 20151103
  17. FABRAZYME [Suspect]
     Active Substance: AGALSIDASE BETA
     Indication: FABRY^S DISEASE
     Route: 042

REACTIONS (2)
  - Pruritus [Unknown]
  - Swelling [Unknown]
